FAERS Safety Report 6010648-9 (Version None)
Quarter: 2008Q4

REPORT INFORMATION
  Report Type: 
  Country: None (occurrence: None)
  Receive Date: 20081218
  Receipt Date: 20081208
  Transmission Date: 20090506
  Serious: Yes (Hospitalization)
  Sender: FDA-Public Use
  Company Number: PHHO2007MX13706

PATIENT
  Age: 82 Year
  Sex: Female

DRUGS (2)
  1. ZELNORM [Suspect]
     Dosage: 2 TAB (6 MG), UNK
     Route: 048
  2. ZELNORM [Suspect]
     Dosage: 1 TAB (6MG) PER DAY
     Route: 048

REACTIONS (4)
  - DEHYDRATION [None]
  - DIZZINESS [None]
  - NAUSEA [None]
  - VOMITING [None]
